FAERS Safety Report 11869018 (Version 1)
Quarter: 2015Q4

REPORT INFORMATION
  Report Type: Spontaneous
  Country: US (occurrence: US)
  Receive Date: 20151225
  Receipt Date: 20151225
  Transmission Date: 20160305
  Serious: Yes (Hospitalization, Other)
  Sender: FDA-Public Use
  Company Number: US-AMGEN-USASP2015136488

PATIENT
  Age: 55 Year
  Sex: Female

DRUGS (2)
  1. PROLIA [Suspect]
     Active Substance: DENOSUMAB
     Indication: PRODUCT USED FOR UNKNOWN INDICATION
     Dosage: UNK
     Route: 065
     Dates: start: 2010
  2. VITAMIN D3 [Concomitant]
     Active Substance: CHOLECALCIFEROL
     Dosage: 2000 IU, QD
     Route: 065

REACTIONS (7)
  - Compression fracture [Unknown]
  - Malaise [Unknown]
  - Vasculitis [Unknown]
  - Ulcer [Recovering/Resolving]
  - Drug dose omission [Unknown]
  - Irritable bowel syndrome [Recovering/Resolving]
  - Vascular insufficiency [Unknown]

NARRATIVE: CASE EVENT DATE: 201202
